FAERS Safety Report 10588803 (Version 2)
Quarter: 2014Q4

REPORT INFORMATION
  Report Type: Spontaneous
  Country: US (occurrence: US)
  Receive Date: 20141117
  Receipt Date: 20141124
  Transmission Date: 20150529
  Serious: No
  Sender: FDA-Public Use
  Company Number: US-GILEAD-2014-0122191

PATIENT
  Age: 55 Year
  Sex: Male

DRUGS (11)
  1. MYRBETRIQ [Concomitant]
     Active Substance: MIRABEGRON
  2. ASPRIN [Concomitant]
     Active Substance: ASPIRIN
  3. FUROSEMIDE. [Concomitant]
     Active Substance: FUROSEMIDE
  4. MAG-OX [Concomitant]
  5. VELETRI [Concomitant]
     Active Substance: EPOPROSTENOL
  6. FINASTERIDE. [Concomitant]
     Active Substance: FINASTERIDE
  7. BACLOFEN. [Concomitant]
     Active Substance: BACLOFEN
  8. OLANZAPINE. [Concomitant]
     Active Substance: OLANZAPINE
  9. LETAIRIS [Suspect]
     Active Substance: AMBRISENTAN
     Indication: COR PULMONALE CHRONIC
     Dosage: 10 MG, UNK
     Dates: start: 20130510
  10. LEVOTHYROXINE [Concomitant]
     Active Substance: LEVOTHYROXINE
  11. PANTOPRAZOLE [Concomitant]
     Active Substance: PANTOPRAZOLE SODIUM

REACTIONS (2)
  - Unevaluable event [Not Recovered/Not Resolved]
  - Intentional underdose [Unknown]
